FAERS Safety Report 6814210-7 (Version None)
Quarter: 2010Q3

REPORT INFORMATION
  Report Type: 
  Country: None (occurrence: None)
  Receive Date: 20100702
  Receipt Date: 20100624
  Transmission Date: 20110219
  Serious: Yes (Other)
  Sender: FDA-Public Use
  Company Number: US-JNJFOC-20100510822

PATIENT
  Sex: Female

DRUGS (1)
  1. FENTANYL [Suspect]
     Indication: PAIN
     Route: 062

REACTIONS (3)
  - FIBROMYALGIA [None]
  - PAIN [None]
  - PRODUCT QUALITY ISSUE [None]
